FAERS Safety Report 12678103 (Version 5)
Quarter: 2017Q1

REPORT INFORMATION
  Report Type: Report from Study
  Country: PL (occurrence: PL)
  Receive Date: 20160823
  Receipt Date: 20170307
  Transmission Date: 20170428
  Serious: Yes (Death, Life-Threatening, Hospitalization, Other)
  Sender: FDA-Public Use
  Company Number: PL-EISAI MEDICAL RESEARCH-E7080-00858-CLI-PL

PATIENT
  Age: 68 Year
  Sex: Female
  Weight: 81 kg

DRUGS (31)
  1. LENVATINIB [Suspect]
     Active Substance: LENVATINIB
     Route: 048
     Dates: start: 20130427, end: 20160713
  2. EUTHYROX [Concomitant]
     Active Substance: LEVOTHYROXINE SODIUM
     Indication: POST PROCEDURAL HYPOTHYROIDISM
  3. XARTAN [Concomitant]
     Active Substance: LOSARTAN POTASSIUM
  4. LENVATINIB [Suspect]
     Active Substance: LENVATINIB
     Route: 048
     Dates: start: 20100601, end: 20120613
  5. CLEXANE [Concomitant]
     Active Substance: ENOXAPARIN SODIUM
     Indication: PULMONARY EMBOLISM
  6. LENVATINIB [Suspect]
     Active Substance: LENVATINIB
     Indication: THYROID CANCER
     Route: 048
     Dates: start: 20091208, end: 20100317
  7. SPIRONOL [Concomitant]
     Active Substance: SPIRONOLACTONE
     Indication: DYSPNOEA
  8. LOPERAMIDE [Concomitant]
     Active Substance: LOPERAMIDE
  9. CALPEROS [Concomitant]
     Active Substance: CALCIUM CARBONATE
  10. TRITACE [Concomitant]
     Active Substance: RAMIPRIL
     Indication: HYPERTENSION
  11. FUROSEMID [Concomitant]
     Active Substance: FUROSEMIDE
     Indication: HYPERTENSION
  12. METRONIDAZOL [Concomitant]
     Active Substance: METRONIDAZOLE
     Indication: PROPHYLAXIS
  13. 20 % ALBUMINE SOLUTION [Concomitant]
     Indication: HYPOALBUMINAEMIA
  14. PRESTARIUM [Concomitant]
     Active Substance: PERINDOPRIL
  15. LOKREN [Concomitant]
     Active Substance: BETAXOLOL HYDROCHLORIDE
  16. POLPRAZOL [Concomitant]
     Active Substance: OMEPRAZOLE
  17. LEVONOR [Concomitant]
  18. VIVACOR [Concomitant]
     Active Substance: BISOPROLOL FUMARATE
     Indication: HYPERTENSION
  19. TARCEFANDOL [Concomitant]
     Indication: PROPHYLAXIS
  20. LENVATINIB [Suspect]
     Active Substance: LENVATINIB
     Route: 048
     Dates: start: 20100330, end: 20100524
  21. LENVATINIB [Suspect]
     Active Substance: LENVATINIB
     Route: 048
     Dates: start: 20120711, end: 20130422
  22. LENVATINIB [Suspect]
     Active Substance: LENVATINIB
     Route: 048
     Dates: start: 20160810, end: 20160812
  23. DOPAMINA [Concomitant]
  24. PLASMA [Concomitant]
     Active Substance: HUMAN PLASMA
  25. THIOCODOIN (MULTIDRUG) [Concomitant]
     Indication: COUGH
  26. HYDROCORTISONE. [Concomitant]
     Active Substance: HYDROCORTISONE
     Indication: PULMONARY EMBOLISM
  27. ALFADIOL [Concomitant]
     Active Substance: ALFACALCIDOL
  28. MAGNE B6 [Concomitant]
     Active Substance: MAGNESIUM\PYRIDOXINE
  29. KALIPOZ [Concomitant]
     Active Substance: POTASSIUM CHLORIDE
     Indication: SUPPLEMENTATION THERAPY
  30. DOXAR [Concomitant]
     Indication: HYPERTENSION
  31. ESTAZOLAM. [Concomitant]
     Active Substance: ESTAZOLAM

REACTIONS (5)
  - Pulmonary embolism [Recovered/Resolved]
  - Hypotension [Not Recovered/Not Resolved]
  - Diarrhoea [Unknown]
  - Intestinal perforation [Fatal]
  - Renal failure [Not Recovered/Not Resolved]

NARRATIVE: CASE EVENT DATE: 20120712
